FAERS Safety Report 6349886-4 (Version None)
Quarter: 2009Q3

REPORT INFORMATION
  Report Type: 
  Country: None (occurrence: None)
  Receive Date: 20090911
  Receipt Date: 20090903
  Transmission Date: 20100115
  Serious: Yes (Other)
  Sender: FDA-Public Use
  Company Number: US-GENENTECH-289825

PATIENT
  Sex: Male
  Weight: 63.96 kg

DRUGS (5)
  1. PLACEBO [Suspect]
     Indication: COLORECTAL CANCER METASTATIC
     Dosage: 150 UNK, QD
     Route: 048
     Dates: start: 20080803, end: 20090806
  2. AVASTIN [Suspect]
     Indication: COLORECTAL CANCER METASTATIC
     Dosage: UNK
     Dates: end: 20090529
  3. FOLINIC ACID [Suspect]
     Indication: COLORECTAL CANCER METASTATIC
     Dosage: UNK
     Dates: end: 20090724
  4. FLUOROURACIL [Suspect]
     Indication: COLORECTAL CANCER METASTATIC
     Dosage: UNK
     Dates: end: 20090724
  5. IRINOTECAN HCL [Suspect]
     Indication: COLORECTAL CANCER METASTATIC
     Dosage: UNK
     Dates: end: 20090724

REACTIONS (1)
  - PSYCHOTIC DISORDER [None]
